FAERS Safety Report 5733421-5 (Version None)
Quarter: 2008Q2

REPORT INFORMATION
  Report Type: 
  Country: None (occurrence: None)
  Receive Date: 20080509
  Receipt Date: 20080428
  Transmission Date: 20081010
  Serious: No
  Sender: FDA-Public Use
  Company Number: FR-ROCHE-561877

PATIENT
  Age: 27 Year
  Sex: Female
  Weight: 62 kg

DRUGS (2)
  1. ROACCUTANE [Suspect]
     Indication: DRUG USE FOR UNKNOWN INDICATION
     Dosage: CUMULATIVE DOSE.
     Route: 064
     Dates: end: 20080227
  2. ORAL CONTRACEPTION [Concomitant]
     Dosage: STOP DATE OF END OF MARCH 2008.
     Dates: end: 20080325

REACTIONS (2)
  - NO ADVERSE EVENT [None]
  - PREGNANCY [None]
